FAERS Safety Report 8110992 (Version 2)
Quarter: 2017Q4

REPORT INFORMATION
  Report Type: Spontaneous
  Country: US (occurrence: US)
  Receive Date: 20110829
  Receipt Date: 20171004
  Transmission Date: 20180321
  Serious: Yes (Hospitalization, Other)
  Sender: FDA-Public Use
  Company Number: US-ROCHE-798255

PATIENT
  Age: 71 Year
  Sex: Female

DRUGS (2)
  1. BONIVA [Suspect]
     Active Substance: IBANDRONATE SODIUM
     Indication: OSTEOPOROSIS
     Route: 048
     Dates: start: 200701, end: 200912
  2. FOSAMAX [Suspect]
     Active Substance: ALENDRONATE SODIUM
     Indication: OSTEOPOROSIS
     Route: 065
     Dates: start: 1997, end: 200612

REACTIONS (7)
  - Low turnover osteopathy [Unknown]
  - Emotional distress [Unknown]
  - Anxiety [Unknown]
  - Femur fracture [Unknown]
  - Stress fracture [Unknown]
  - Pathological fracture [Unknown]
  - Muscle strain [Unknown]

NARRATIVE: CASE EVENT DATE: 20091123
